FAERS Safety Report 10347680 (Version 1)
Quarter: 2014Q3

REPORT INFORMATION
  Report Type: Spontaneous
  Country: US (occurrence: US)
  Receive Date: 20140729
  Receipt Date: 20140729
  Transmission Date: 20150326
  Serious: Yes (Disabling, Other)
  Sender: FDA-Public Use
  Company Number: US-ACTAVIS-2014-16097

PATIENT
  Sex: Female

DRUGS (5)
  1. ZOLPIDEM TARTRATE (WATSON LABORATORIES) [Suspect]
     Active Substance: ZOLPIDEM TARTRATE
     Indication: INITIAL INSOMNIA
     Dosage: 10 MG, 2 TO 3 TIMES DAILY
     Route: 065
  2. THIORIDAZINE (WATSON LABORATORIES) [Suspect]
     Active Substance: THIORIDAZINE
     Indication: PSYCHOTIC DISORDER
     Dosage: UNK
     Route: 065
  3. HALOPERIDOL (WATSON LABORATORIES) [Suspect]
     Active Substance: HALOPERIDOL
     Indication: PSYCHOTIC DISORDER
     Dosage: UNK
     Route: 065
  4. THIORIDAZINE (WATSON LABORATORIES) [Suspect]
     Active Substance: THIORIDAZINE
     Indication: SUICIDAL IDEATION
  5. HALOPERIDOL (WATSON LABORATORIES) [Suspect]
     Active Substance: HALOPERIDOL
     Indication: SUICIDAL IDEATION

REACTIONS (5)
  - Respiratory dyskinesia [Not Recovered/Not Resolved]
  - Torticollis [Not Recovered/Not Resolved]
  - Tardive dyskinesia [Not Recovered/Not Resolved]
  - Oromandibular dystonia [Not Recovered/Not Resolved]
  - Therapeutic response changed [Not Recovered/Not Resolved]
